FAERS Safety Report 20992347 (Version 1)
Quarter: 2022Q2

REPORT INFORMATION
  Report Type: Spontaneous
  Country: BR (occurrence: BR)
  Receive Date: 20220622
  Receipt Date: 20220622
  Transmission Date: 20220721
  Serious: Yes (Other)
  Sender: FDA-Public Use
  Company Number: BR-TAKEDA-2022TUS030255

PATIENT
  Sex: Female

DRUGS (1)
  1. LISDEXAMFETAMINE DIMESYLATE [Suspect]
     Active Substance: LISDEXAMFETAMINE DIMESYLATE
     Indication: Attention deficit hyperactivity disorder
     Dosage: 1 DOSAGE FORM, QD
     Route: 065

REACTIONS (7)
  - Hypothyroidism [Unknown]
  - Adverse event [Unknown]
  - Feeling of despair [Unknown]
  - Job dissatisfaction [Unknown]
  - Drug ineffective [Unknown]
  - Product availability issue [Unknown]
  - Incorrect dose administered [Unknown]
